FAERS Safety Report 14680286 (Version 1)
Quarter: 2018Q1

REPORT INFORMATION
  Report Type: Spontaneous
  Country: JP (occurrence: JP)
  Receive Date: 20180326
  Receipt Date: 20180326
  Transmission Date: 20180509
  Serious: Yes (Hospitalization, Other)
  Sender: FDA-Public Use
  Company Number: JP-009507513-1803JPN002179J

PATIENT
  Sex: Male

DRUGS (1)
  1. KEYTRUDA [Suspect]
     Active Substance: PEMBROLIZUMAB
     Dosage: UNK
     Route: 041

REACTIONS (6)
  - Weight decreased [Unknown]
  - Thyroid function test abnormal [Unknown]
  - Dyspnoea [Unknown]
  - Diabetes mellitus inadequate control [Unknown]
  - Decreased appetite [Unknown]
  - Strabismus [Unknown]
